FAERS Safety Report 13279168 (Version 1)
Quarter: 2017Q1

REPORT INFORMATION
  Report Type: Report from Study
  Country: US (occurrence: US)
  Receive Date: 20170228
  Receipt Date: 20170228
  Transmission Date: 20170428
  Serious: No
  Sender: FDA-Public Use
  Company Number: US-AMAG PHARMACEUTICALS, INC.-AMAG201600442

PATIENT

DRUGS (3)
  1. MAKENA [Suspect]
     Active Substance: HYDROXYPROGESTERONE CAPROATE
     Indication: PRODUCT USED FOR UNKNOWN INDICATION
     Dosage: 250 MG, WEEKLY
     Route: 030
     Dates: start: 20160203, end: 20160330
  2. PRENATAL VITAMINS [Concomitant]
     Active Substance: VITAMINS
     Indication: PREGNANCY
     Dosage: 1 TABS, QD
     Dates: start: 20151115
  3. ALBUTEROL. [Concomitant]
     Active Substance: ALBUTEROL
     Dosage: UNK, PRN

REACTIONS (3)
  - Vomiting [Unknown]
  - Diarrhoea [Unknown]
  - Nausea [Unknown]

NARRATIVE: CASE EVENT DATE: 20160317
